FAERS Safety Report 4965747-7 (Version None)
Quarter: 2006Q2

REPORT INFORMATION
  Report Type: 
  Country: None (occurrence: None)
  Receive Date: 20060405
  Receipt Date: 20060405
  Transmission Date: 20061013
  Serious: Yes (Other)
  Sender: FDA-Public Use
  Company Number: None

PATIENT
  Age: 3 Year
  Sex: Female
  Weight: 12.7007 kg

DRUGS (1)
  1. CECLOR [Suspect]
     Indication: OTITIS MEDIA
     Dosage: 250MG   TID   PO
     Route: 048
     Dates: start: 20060209, end: 20060218

REACTIONS (1)
  - RASH [None]
